FAERS Safety Report 6932189-4 (Version None)
Quarter: 2010Q3

REPORT INFORMATION
  Report Type: 
  Country: None (occurrence: None)
  Receive Date: 20100819
  Receipt Date: 20100812
  Transmission Date: 20110219
  Serious: Yes (Hospitalization)
  Sender: FDA-Public Use
  Company Number: BE-MILLENNIUM PHARMACEUTICALS, INC.-2010-04309

PATIENT

DRUGS (4)
  1. VELCADE [Suspect]
     Indication: MULTIPLE MYELOMA
     Dosage: UNK
     Route: 042
     Dates: start: 20100702, end: 20100723
  2. MELPHALAN [Suspect]
     Indication: MULTIPLE MYELOMA
     Dosage: UNK
     Route: 048
     Dates: start: 20100702, end: 20100723
  3. PREDNISONE [Suspect]
     Indication: MULTIPLE MYELOMA
     Dosage: UNK
     Route: 048
     Dates: start: 20100702, end: 20100723
  4. ASPIRIN [Concomitant]
     Indication: THROMBOSIS PROPHYLAXIS

REACTIONS (3)
  - DYSPNOEA [None]
  - INFECTION [None]
  - PYREXIA [None]
